FAERS Safety Report 4710754-2 (Version None)
Quarter: 2005Q3

REPORT INFORMATION
  Report Type: 
  Country: None (occurrence: None)
  Receive Date: 20050706
  Receipt Date: 20050706
  Transmission Date: 20060218
  Serious: Yes (Death)
  Sender: FDA-Public Use
  Company Number: None

PATIENT
  Sex: Female
  Weight: 56.4 kg

DRUGS (1)
  1. RAPAMYCIN  5 MG [Suspect]
     Indication: PANCREATIC CARCINOMA
     Dosage: 5MG QD ORAL
     Route: 048
     Dates: start: 20050323, end: 20050328

REACTIONS (1)
  - DEATH [None]
